FAERS Safety Report 14141351 (Version 1)
Quarter: 2017Q4

REPORT INFORMATION
  Report Type: Spontaneous
  Country: DE (occurrence: DE)
  Receive Date: 20171030
  Receipt Date: 20171030
  Transmission Date: 20180321
  Serious: Yes (Hospitalization, Other)
  Sender: FDA-Public Use
  Company Number: DE-TEVA-818451GER

PATIENT
  Age: 48 Year
  Sex: Female

DRUGS (1)
  1. COPAXONE [Suspect]
     Active Substance: GLATIRAMER ACETATE
     Indication: MULTIPLE SCLEROSIS
     Dosage: 20 MILLIGRAM DAILY;
     Dates: start: 20041011

REACTIONS (4)
  - Multiple sclerosis relapse [Unknown]
  - Sensory disturbance [Unknown]
  - Groin pain [Unknown]
  - Balance disorder [Unknown]

NARRATIVE: CASE EVENT DATE: 201708
